FAERS Safety Report 20457309 (Version 3)
Quarter: 2022Q4

REPORT INFORMATION
  Report Type: Spontaneous
  Country: DE (occurrence: DE)
  Receive Date: 20220210
  Receipt Date: 20221117
  Transmission Date: 20230113
  Serious: Yes (Disabling)
  Sender: FDA-Public Use
  Company Number: DE-DCGMA-22196293

PATIENT
  Age: 63 Year
  Sex: Female

DRUGS (14)
  1. ATEZOLIZUMAB [Suspect]
     Active Substance: ATEZOLIZUMAB
     Indication: Small cell lung cancer
     Route: 042
     Dates: start: 20200907, end: 20211223
  2. ATEZOLIZUMAB [Suspect]
     Active Substance: ATEZOLIZUMAB
     Route: 042
     Dates: start: 202004, end: 20211223
  3. RAMIPRIL [Concomitant]
     Active Substance: RAMIPRIL
  4. METOPROLOL [Concomitant]
     Active Substance: METOPROLOL
  5. TRIMIPRAMINE [Concomitant]
     Active Substance: TRIMIPRAMINE
  6. HYDROCORTISONE [Concomitant]
     Active Substance: HYDROCORTISONE
  7. ASPIRIN [Concomitant]
     Active Substance: ASPIRIN
  8. FOLIC ACID [Concomitant]
     Active Substance: FOLIC ACID
  9. PANTOPRAZOLE [Concomitant]
     Active Substance: PANTOPRAZOLE
  10. CHOLECALCIFEROL [Concomitant]
     Active Substance: CHOLECALCIFEROL
  11. OXYCODONE [Concomitant]
     Active Substance: OXYCODONE
  12. LORAZEPAM [Concomitant]
     Active Substance: LORAZEPAM
  13. ETOPOSIDE [Concomitant]
     Active Substance: ETOPOSIDE
     Dosage: IN MEHREREN ZYKLEN VERABREICHT.
     Dates: start: 202104, end: 202108
  14. CISPLATIN [Concomitant]
     Active Substance: CISPLATIN

REACTIONS (1)
  - Pancreatic atrophy [Unknown]
